FAERS Safety Report 7652533-2 (Version None)
Quarter: 2011Q3

REPORT INFORMATION
  Report Type: 
  Country: None (occurrence: None)
  Receive Date: 20110801
  Receipt Date: 20110801
  Transmission Date: 20111222
  Serious: Yes (Other)
  Sender: FDA-Public Use
  Company Number: None

PATIENT
  Age: 74 Year
  Sex: Female

DRUGS (1)
  1. SUTENT [Suspect]
     Indication: NEOPLASM MALIGNANT
     Dosage: 50MG DAILY FOR 4 WEEKS ORAL
     Route: 048
     Dates: start: 20110527, end: 20110727

REACTIONS (4)
  - PETECHIAE [None]
  - HEADACHE [None]
  - FATIGUE [None]
  - RECTAL HAEMORRHAGE [None]
